FAERS Safety Report 9251120 (Version 1)
Quarter: 2013Q1

REPORT INFORMATION
  Report Type: Spontaneous
  Country: US (occurrence: None)
  Receive Date: 20130305
  Receipt Date: 20130305
  Transmission Date: 20140127
  Serious: Yes (Other)
  Sender: FDA-Public Use
  Company Number: 163-21880-12042543

PATIENT
  Age: 52 Year
  Sex: Female
  Weight: 100.02 kg

DRUGS (1)
  1. REVLIMID [Suspect]
     Indication: PLASMA CELL MYELOMA
     Dosage: 10MG, EVERY DAY FOR 3 WEEKS, PO
     Route: 048
     Dates: start: 20090703

REACTIONS (4)
  - Nausea [None]
  - Diarrhoea [None]
  - Fatigue [None]
  - Haemoglobin decreased [None]
